FAERS Safety Report 5258490-0 (Version None)
Quarter: 2007Q1

REPORT INFORMATION
  Report Type: 
  Country: None (occurrence: None)
  Receive Date: 20070308
  Receipt Date: 20070227
  Transmission Date: 20070707
  Serious: Yes (Disabling)
  Sender: FDA-Public Use
  Company Number: PT-AVENTIS-200711774GDDC

PATIENT
  Age: 55 Year
  Sex: Female

DRUGS (4)
  1. METRONIDAZOLE [Suspect]
     Route: 048
     Dates: start: 20070202, end: 20070206
  2. NYSTATIN [Concomitant]
     Route: 048
     Dates: start: 20070202, end: 20070209
  3. CLEMIZOLE PENICILLIN [Concomitant]
     Route: 030
     Dates: start: 20070202, end: 20070209
  4. PENICILLIN G [Concomitant]
     Route: 030
     Dates: start: 20070202, end: 20070209

REACTIONS (5)
  - ABDOMINAL PAIN UPPER [None]
  - HEPATIC PAIN [None]
  - HEPATOMEGALY [None]
  - PYREXIA [None]
  - RASH PUSTULAR [None]
